FAERS Safety Report 14405728 (Version 7)
Quarter: 2019Q3

REPORT INFORMATION
  Report Type: Spontaneous
  Country: US (occurrence: US)
  Receive Date: 20180118
  Receipt Date: 20190923
  Transmission Date: 20191004
  Serious: Yes (Other)
  Sender: FDA-Public Use
  Company Number: US-ASTRAZENECA-2018SE04050

PATIENT
  Age: 19365 Day
  Sex: Male
  Weight: 57.6 kg

DRUGS (73)
  1. NEXIUM [Suspect]
     Active Substance: ESOMEPRAZOLE MAGNESIUM
     Indication: ABDOMINAL DISCOMFORT
     Route: 048
     Dates: start: 2016
  2. NEXIUM [Suspect]
     Active Substance: ESOMEPRAZOLE MAGNESIUM
     Indication: ABDOMINAL DISCOMFORT
     Dosage: 40.0MG UNKNOWN
     Route: 048
     Dates: start: 201107, end: 201607
  3. PREVACID [Suspect]
     Active Substance: LANSOPRAZOLE
     Indication: GASTROOESOPHAGEAL REFLUX DISEASE
     Route: 065
     Dates: start: 20070206
  4. XANAX [Concomitant]
     Active Substance: ALPRAZOLAM
  5. NEURONTIN [Concomitant]
     Active Substance: GABAPENTIN
     Indication: MUSCLE RELAXANT THERAPY
     Dates: start: 2008, end: 201806
  6. PROGRAF [Concomitant]
     Active Substance: TACROLIMUS\TACROLIMUS ANHYDROUS
     Indication: IMMUNOSUPPRESSANT DRUG THERAPY
     Dates: start: 2000
  7. PIROXICAM. [Concomitant]
     Active Substance: PIROXICAM
     Route: 065
     Dates: start: 20070121
  8. LYRICA [Concomitant]
     Active Substance: PREGABALIN
     Route: 065
     Dates: start: 20070206
  9. NOVOLOG [Concomitant]
     Active Substance: INSULIN ASPART
     Route: 065
     Dates: start: 20070401
  10. PAROXETINE HCL [Concomitant]
     Active Substance: PAROXETINE HYDROCHLORIDE
     Route: 065
     Dates: start: 20090728
  11. FUROSEMIDE. [Concomitant]
     Active Substance: FUROSEMIDE
  12. NEXIUM [Suspect]
     Active Substance: ESOMEPRAZOLE MAGNESIUM
     Indication: ABDOMINAL DISCOMFORT
     Route: 048
     Dates: start: 20070206, end: 20160706
  13. NEXIUM [Suspect]
     Active Substance: ESOMEPRAZOLE MAGNESIUM
     Indication: DYSPEPSIA
     Route: 048
     Dates: start: 2011, end: 2016
  14. NEXIUM [Suspect]
     Active Substance: ESOMEPRAZOLE MAGNESIUM
     Indication: GASTROOESOPHAGEAL REFLUX DISEASE
     Route: 048
     Dates: start: 2011, end: 2016
  15. NEXIUM [Suspect]
     Active Substance: ESOMEPRAZOLE MAGNESIUM
     Indication: DYSPEPSIA
     Route: 048
     Dates: start: 2016
  16. NEXIUM [Suspect]
     Active Substance: ESOMEPRAZOLE MAGNESIUM
     Indication: GASTROOESOPHAGEAL REFLUX DISEASE
     Route: 048
     Dates: start: 2016
  17. NEXIUM [Suspect]
     Active Substance: ESOMEPRAZOLE MAGNESIUM
     Indication: DYSPEPSIA
     Dosage: 40.0MG UNKNOWN
     Route: 048
     Dates: start: 20090213, end: 20160606
  18. PRILOSEC [Suspect]
     Active Substance: OMEPRAZOLE MAGNESIUM
     Route: 048
  19. PREVACID [Suspect]
     Active Substance: LANSOPRAZOLE
     Indication: ABDOMINAL DISCOMFORT
     Route: 065
     Dates: start: 20070206, end: 20090221
  20. VIREAD [Concomitant]
     Active Substance: TENOFOVIR DISOPROXIL FUMARATE
     Indication: ANTIVIRAL TREATMENT
     Dates: start: 201105, end: 201608
  21. PROGRAF [Concomitant]
     Active Substance: TACROLIMUS\TACROLIMUS ANHYDROUS
     Indication: IMMUNOSUPPRESSANT DRUG THERAPY
     Dates: start: 20100729
  22. COZAAR [Concomitant]
     Active Substance: LOSARTAN POTASSIUM
     Indication: BLOOD PRESSURE ABNORMAL
     Dates: start: 200702, end: 200708
  23. VITAMIN D [Concomitant]
     Active Substance: VITAMIN D NOS
     Indication: VITAMIN D DECREASED
     Dates: start: 2016
  24. VITAMIN B2 [Concomitant]
     Active Substance: RIBOFLAVIN
     Indication: VITAMIN B2 DECREASED
     Dates: start: 2016
  25. GLUCAGON. [Concomitant]
     Active Substance: GLUCAGON
     Route: 065
     Dates: start: 20070115
  26. PROMETHAZINE [Concomitant]
     Active Substance: PROMETHAZINE HYDROCHLORIDE
     Route: 065
     Dates: start: 20160714
  27. TRAZODONE [Concomitant]
     Active Substance: TRAZODONE HYDROCHLORIDE
  28. SODIUM BICARBONATE. [Concomitant]
     Active Substance: SODIUM BICARBONATE
  29. ONDANSETRON [Concomitant]
     Active Substance: ONDANSETRON
  30. NEXIUM [Suspect]
     Active Substance: ESOMEPRAZOLE MAGNESIUM
     Indication: GASTROOESOPHAGEAL REFLUX DISEASE
     Route: 048
     Dates: start: 20070206, end: 20160706
  31. NEXIUM [Suspect]
     Active Substance: ESOMEPRAZOLE MAGNESIUM
     Indication: DYSPEPSIA
     Dosage: 40.0MG UNKNOWN
     Route: 048
     Dates: start: 201107, end: 201607
  32. PREVACID [Suspect]
     Active Substance: LANSOPRAZOLE
     Indication: DYSPEPSIA
     Route: 065
     Dates: start: 20070206, end: 20160706
  33. LOMOTIL [Concomitant]
     Active Substance: ATROPINE SULFATE\DIPHENOXYLATE HYDROCHLORIDE
     Indication: DIARRHOEA
     Dates: start: 2010
  34. VIREAD [Concomitant]
     Active Substance: TENOFOVIR DISOPROXIL FUMARATE
     Indication: ANTIVIRAL TREATMENT
     Dates: start: 2015
  35. TOUJEO [Concomitant]
     Active Substance: INSULIN GLARGINE
     Indication: DIABETES MELLITUS
  36. VITAMIN B2 [Concomitant]
     Active Substance: RIBOFLAVIN
     Indication: MALNUTRITION
     Dates: start: 2016
  37. CEPHALEXIN. [Concomitant]
     Active Substance: CEPHALEXIN
     Route: 065
     Dates: start: 20071210
  38. CIPROFLOXACIN. [Concomitant]
     Active Substance: CIPROFLOXACIN
     Indication: ANTIBIOTIC THERAPY
     Dates: start: 200703, end: 200711
  39. ATORVASTATIN [Concomitant]
     Active Substance: ATORVASTATIN
  40. NEXIUM [Suspect]
     Active Substance: ESOMEPRAZOLE MAGNESIUM
     Indication: ABDOMINAL DISCOMFORT
     Route: 048
     Dates: start: 2011, end: 2016
  41. NEXIUM [Suspect]
     Active Substance: ESOMEPRAZOLE MAGNESIUM
     Indication: GASTROOESOPHAGEAL REFLUX DISEASE
     Dosage: 40.0MG UNKNOWN
     Route: 048
     Dates: start: 201107, end: 201607
  42. ZETIA [Concomitant]
     Active Substance: EZETIMIBE
     Indication: BLOOD CHOLESTEROL ABNORMAL
  43. NORCO [Concomitant]
     Active Substance: ACETAMINOPHEN\HYDROCODONE BITARTRATE
     Indication: PAIN
  44. COZAAR [Concomitant]
     Active Substance: LOSARTAN POTASSIUM
     Indication: BLOOD PRESSURE ABNORMAL
     Dates: end: 201806
  45. TRESIBA [Concomitant]
     Active Substance: INSULIN DEGLUDEC
     Indication: DIABETES MELLITUS
     Dates: start: 201803
  46. VITAMIN D [Concomitant]
     Active Substance: VITAMIN D NOS
     Indication: MALNUTRITION
     Dates: start: 2016
  47. CIPROFLOXACIN HCL [Concomitant]
     Active Substance: CIPROFLOXACIN HYDROCHLORIDE
     Route: 065
     Dates: start: 20070306
  48. MAGNESIUM OXIDE. [Concomitant]
     Active Substance: MAGNESIUM OXIDE
  49. PREVACID [Suspect]
     Active Substance: LANSOPRAZOLE
     Indication: ABDOMINAL DISCOMFORT
     Route: 065
     Dates: start: 20070206
  50. COREG [Concomitant]
     Active Substance: CARVEDILOL
     Indication: BLOOD PRESSURE ABNORMAL
     Dates: start: 20070930
  51. LOSARTAN. [Concomitant]
     Active Substance: LOSARTAN
  52. VIREAD [Concomitant]
     Active Substance: TENOFOVIR DISOPROXIL FUMARATE
     Indication: TRANSPLANT REJECTION
     Dates: start: 201105, end: 201608
  53. METRONIDAZOLE. [Concomitant]
     Active Substance: METRONIDAZOLE
     Route: 065
     Dates: start: 20090610
  54. MIDAZOLAM [Concomitant]
     Active Substance: MIDAZOLAM HYDROCHLORIDE
  55. NEXIUM [Suspect]
     Active Substance: ESOMEPRAZOLE MAGNESIUM
     Indication: ABDOMINAL DISCOMFORT
     Dosage: 40.0MG UNKNOWN
     Route: 048
     Dates: start: 20120117
  56. PREVACID [Suspect]
     Active Substance: LANSOPRAZOLE
     Indication: DYSPEPSIA
     Route: 065
     Dates: start: 20070206, end: 20090221
  57. AZITHROMYCIN ANHYDROUS. [Concomitant]
     Active Substance: AZITHROMYCIN ANHYDROUS
     Indication: ANTIBIOTIC THERAPY
     Dates: start: 200905
  58. GENTAMICIN SULFATE. [Concomitant]
     Active Substance: GENTAMICIN SULFATE
  59. TENOFOVIR [Concomitant]
     Active Substance: TENOFOVIR
  60. NEXIUM [Suspect]
     Active Substance: ESOMEPRAZOLE MAGNESIUM
     Indication: DYSPEPSIA
     Route: 048
     Dates: start: 20070206, end: 20160706
  61. NEXIUM [Suspect]
     Active Substance: ESOMEPRAZOLE MAGNESIUM
     Indication: DYSPEPSIA
     Dosage: 40.0MG UNKNOWN
     Route: 048
     Dates: start: 20120117
  62. NEXIUM [Suspect]
     Active Substance: ESOMEPRAZOLE MAGNESIUM
     Indication: GASTROOESOPHAGEAL REFLUX DISEASE
     Dosage: 40.0MG UNKNOWN
     Route: 048
     Dates: start: 20090213, end: 20160606
  63. PREVACID [Suspect]
     Active Substance: LANSOPRAZOLE
     Indication: GASTROOESOPHAGEAL REFLUX DISEASE
     Route: 065
     Dates: start: 20070206, end: 20160706
  64. PREVACID [Suspect]
     Active Substance: LANSOPRAZOLE
     Indication: GASTROOESOPHAGEAL REFLUX DISEASE
     Route: 065
     Dates: start: 20070206, end: 20090221
  65. CYCLOBENZAPRINE. [Concomitant]
     Active Substance: CYCLOBENZAPRINE
     Route: 065
     Dates: start: 20070121
  66. METOPROLOL SUCC [Concomitant]
     Active Substance: METOPROLOL SUCCINATE
     Route: 065
     Dates: start: 20070206
  67. NEXIUM [Suspect]
     Active Substance: ESOMEPRAZOLE MAGNESIUM
     Indication: GASTROOESOPHAGEAL REFLUX DISEASE
     Dosage: 40.0MG UNKNOWN
     Route: 048
     Dates: start: 20120117
  68. NEXIUM [Suspect]
     Active Substance: ESOMEPRAZOLE MAGNESIUM
     Indication: ABDOMINAL DISCOMFORT
     Dosage: 40.0MG UNKNOWN
     Route: 048
     Dates: start: 20090213, end: 20160606
  69. PREVACID [Suspect]
     Active Substance: LANSOPRAZOLE
     Indication: ABDOMINAL DISCOMFORT
     Route: 065
     Dates: start: 20070206, end: 20160706
  70. PREVACID [Suspect]
     Active Substance: LANSOPRAZOLE
     Indication: DYSPEPSIA
     Route: 065
     Dates: start: 20070206
  71. VIREAD [Concomitant]
     Active Substance: TENOFOVIR DISOPROXIL FUMARATE
     Indication: TRANSPLANT REJECTION
     Dates: start: 2015
  72. PROGRAF [Concomitant]
     Active Substance: TACROLIMUS\TACROLIMUS ANHYDROUS
     Indication: IMMUNOSUPPRESSANT DRUG THERAPY
     Dates: start: 200701, end: 201608
  73. SODIUM BENZOATE [Concomitant]
     Active Substance: SODIUM BENZOATE
     Dates: start: 201708

REACTIONS (8)
  - Weight decreased [Not Recovered/Not Resolved]
  - End stage renal disease [Unknown]
  - Nephrogenic anaemia [Unknown]
  - Chronic kidney disease [Not Recovered/Not Resolved]
  - Acute kidney injury [Unknown]
  - Renal failure [Unknown]
  - Hyperparathyroidism secondary [Unknown]
  - Renal injury [Unknown]

NARRATIVE: CASE EVENT DATE: 20150515
